FAERS Safety Report 7610954-8 (Version None)
Quarter: 2011Q3

REPORT INFORMATION
  Report Type: 
  Country: None (occurrence: None)
  Receive Date: 20110715
  Receipt Date: 20110705
  Transmission Date: 20111222
  Serious: Yes (Hospitalization, Other)
  Sender: FDA-Public Use
  Company Number: PHHY2011MX44570

PATIENT
  Sex: Male

DRUGS (1)
  1. ZOMETA [Suspect]
     Indication: OSTEOPOROSIS
     Dosage: 4 MG, UNK (4MG/5ML)
     Dates: start: 20110420

REACTIONS (4)
  - GASTROINTESTINAL HAEMORRHAGE [None]
  - PULMONARY HAEMORRHAGE [None]
  - METASTASES TO LUNG [None]
  - HAEMATEMESIS [None]
